FAERS Safety Report 10156680 (Version 1)
Quarter: 2014Q2

REPORT INFORMATION
  Report Type: Spontaneous
  Country: US (occurrence: None)
  Receive Date: 20140506
  Receipt Date: 20140506
  Transmission Date: 20141212
  Serious: Yes (Hospitalization)
  Sender: FDA-Public Use
  Company Number: None

PATIENT
  Age: 49 Year
  Sex: Male

DRUGS (13)
  1. CLOZAPINE [Suspect]
     Indication: SCHIZOPHRENIA
     Route: 048
     Dates: start: 20130318, end: 20130322
  2. ACETAMINOPHEN [Concomitant]
  3. AMPICILLIN/SUBACTAM [Concomitant]
  4. DOCUSATE [Concomitant]
  5. HEPARIN [Concomitant]
  6. IBUPROFEN [Concomitant]
  7. INSULIN ASPART [Concomitant]
  8. INSULIN GLARGINE [Concomitant]
  9. LIODOCAINE PATCH [Concomitant]
  10. METOPROLOL [Concomitant]
  11. ONDANSETRON [Concomitant]
  12. OXYCODONE [Concomitant]
  13. RANITIDINE [Concomitant]

REACTIONS (1)
  - White blood cell count decreased [None]
